FAERS Safety Report 7034406-1 (Version None)
Quarter: 2010Q4

REPORT INFORMATION
  Report Type: 
  Country: None (occurrence: None)
  Receive Date: 20101008
  Receipt Date: 20100927
  Transmission Date: 20110411
  Serious: Yes (Other)
  Sender: FDA-Public Use
  Company Number: PHHY2010SE65223

PATIENT

DRUGS (1)
  1. EXELON [Suspect]

REACTIONS (1)
  - FAILURE TO THRIVE [None]
